FAERS Safety Report 13113388 (Version 1)
Quarter: 2017Q1

REPORT INFORMATION
  Report Type: Spontaneous
  Country: US (occurrence: US)
  Receive Date: 20170113
  Receipt Date: 20170113
  Transmission Date: 20170428
  Serious: Yes (Death)
  Sender: FDA-Public Use
  Company Number: US-SAGENTPRD-2017-US-000003

PATIENT
  Age: 43 Year
  Sex: Female

DRUGS (6)
  1. PEGFILGRASTIM [Concomitant]
     Active Substance: PEGFILGRASTIM
  2. METHOTREXATE. [Concomitant]
     Active Substance: METHOTREXATE
  3. LEUCOVORIN CALCIUM FOR INJECTION [Suspect]
     Active Substance: LEUCOVORIN CALCIUM
     Dosage: 50 MG Q12H, THEN Q6H
  4. METHYLPREDNISOLONE. [Concomitant]
     Active Substance: METHYLPREDNISOLONE
  5. BRENTUXIMAB [Concomitant]
     Active Substance: BRENTUXIMAB VEDOTIN
  6. CYTARABINE. [Concomitant]
     Active Substance: CYTARABINE

REACTIONS (5)
  - Febrile neutropenia [Fatal]
  - Disease progression [Fatal]
  - Neuropathy peripheral [Fatal]
  - Thrombocytopenia [Fatal]
  - Anaemia [Fatal]
